FAERS Safety Report 8389077-9 (Version None)
Quarter: 2012Q2

REPORT INFORMATION
  Report Type: 
  Country: None (occurrence: None)
  Receive Date: 20120528
  Receipt Date: 20120521
  Transmission Date: 20120825
  Serious: Yes (Other)
  Sender: FDA-Public Use
  Company Number: PHEH2012US001726

PATIENT
  Sex: Male
  Weight: 106.58 kg

DRUGS (6)
  1. LISINOPRIL AND HYDROCHLOROTHIAZIDE [Concomitant]
     Dosage: 20/25 MG, UNK
  2. GLEEVEC [Suspect]
     Dosage: 400 MG, QD
     Route: 048
  3. VITAMIN D [Concomitant]
  4. IRON [Concomitant]
     Dates: start: 20111220
  5. FENOFIBRATE [Concomitant]
  6. VITAMIN B-12 [Concomitant]

REACTIONS (4)
  - HERNIA [None]
  - NAUSEA [None]
  - DRY SKIN [None]
  - INSOMNIA [None]
